FAERS Safety Report 7052320-2 (Version None)
Quarter: 2010Q4

REPORT INFORMATION
  Report Type: 
  Country: None (occurrence: None)
  Receive Date: 20101019
  Receipt Date: 20101019
  Transmission Date: 20110411
  Serious: Yes (Death, Other)
  Sender: FDA-Public Use
  Company Number: RO-ABBOTT-10P-135-0673826-00

PATIENT
  Sex: Male
  Weight: 120 kg

DRUGS (8)
  1. HUMIRA [Suspect]
     Indication: PSORIASIS
     Route: 058
     Dates: start: 20100520, end: 20100520
  2. HUMIRA [Suspect]
     Indication: PSORIATIC ARTHROPATHY
     Dates: end: 20100821
  3. METHOTREXATE [Suspect]
     Indication: PSORIATIC ARTHROPATHY
     Route: 030
     Dates: start: 20100701, end: 20100827
  4. MTX [Concomitant]
     Indication: PSORIATIC ARTHROPATHY
     Dosage: 3 DOSES
     Route: 030
     Dates: start: 20100701, end: 20100827
  5. ENALAPRIL MALEATE [Concomitant]
     Indication: HYPERTENSION
     Route: 048
  6. ISONIAZID [Concomitant]
     Indication: ANTIBIOTIC PROPHYLAXIS
     Route: 048
     Dates: start: 20100501, end: 20100801
  7. SILIMARINE [Concomitant]
     Indication: HEPATIC STEATOSIS
     Route: 048
  8. NEOTIGASON [Concomitant]
     Indication: PRODUCT USED FOR UNKNOWN INDICATION

REACTIONS (10)
  - CARDIAC FAILURE [None]
  - CARDIOPULMONARY FAILURE [None]
  - COMA [None]
  - HEPATIC FAILURE [None]
  - METABOLIC ACIDOSIS [None]
  - RENAL FAILURE [None]
  - SEPTIC SHOCK [None]
  - STAPHYLOCOCCAL INFECTION [None]
  - STEVENS-JOHNSON SYNDROME [None]
  - TOXIC EPIDERMAL NECROLYSIS [None]
